FAERS Safety Report 9096766 (Version 2)
Quarter: 2013Q4

REPORT INFORMATION
  Report Type: Report from Study
  Country: GB (occurrence: GB)
  Receive Date: 20130211
  Receipt Date: 20131004
  Transmission Date: 20140711
  Serious: Yes (Death)
  Sender: FDA-Public Use
  Company Number: GB-ELI_LILLY_AND_COMPANY-GB201302000225

PATIENT
  Age: 15 Year
  Sex: Male

DRUGS (4)
  1. ATOMOXETINE HYDROCHLORIDE [Suspect]
     Indication: ATTENTION DEFICIT/HYPERACTIVITY DISORDER
     Dosage: 25 MG, UNKNOWN
     Route: 048
     Dates: start: 20130122
  2. ATOMOXETINE HYDROCHLORIDE [Suspect]
     Indication: AUTISM SPECTRUM DISORDER
  3. MEDIKINET [Concomitant]
     Dosage: 70 DF, UNKNOWN
     Route: 065
  4. METHYLPHENIDATE [Concomitant]
     Dosage: UNK, UNKNOWN
     Route: 065

REACTIONS (1)
  - Completed suicide [Fatal]
